FAERS Safety Report 5173215-5 (Version None)
Quarter: 2006Q4

REPORT INFORMATION
  Report Type: 
  Country: None (occurrence: None)
  Receive Date: 20061214
  Receipt Date: 20061129
  Transmission Date: 20070319
  Serious: Yes (Life-Threatening)
  Sender: FDA-Public Use
  Company Number: 2006AP05663

PATIENT
  Age: 732 Month
  Sex: Female
  Weight: 55 kg

DRUGS (49)
  1. IRESSA [Suspect]
     Indication: NON-SMALL CELL LUNG CANCER
     Route: 048
     Dates: start: 20061020, end: 20061120
  2. IRESSA [Suspect]
     Indication: LUNG ADENOCARCINOMA
     Route: 048
     Dates: start: 20061020, end: 20061120
  3. PACLITAXEL [Concomitant]
     Dates: start: 20060612
  4. PACLITAXEL [Concomitant]
     Dates: start: 20060705
  5. PACLITAXEL [Concomitant]
     Dosage: THIRD COURSE
  6. CARBOPLATIN [Concomitant]
     Dates: start: 20060612
  7. CARBOPLATIN [Concomitant]
     Dates: start: 20060705
  8. CARBOPLATIN [Concomitant]
     Dosage: THIRD COURSE
  9. AMOXAN [Concomitant]
     Route: 048
  10. EBRANTIL [Concomitant]
     Indication: DYSURIA
     Route: 048
  11. OXYCONTIN [Concomitant]
     Indication: CANCER PAIN
     Route: 048
     Dates: start: 20061022, end: 20061024
  12. OXYCONTIN [Concomitant]
     Dosage: DOSE INCREASED
     Route: 048
     Dates: start: 20061025, end: 20061030
  13. OPSO [Concomitant]
     Route: 048
     Dates: start: 20061024
  14. GASTER D [Concomitant]
     Route: 048
  15. KAMAG G [Concomitant]
     Indication: CONSTIPATION
     Route: 048
     Dates: start: 20061019
  16. DUROTEP [Concomitant]
     Indication: CANCER PAIN
     Dates: start: 20061031, end: 20061121
  17. NOVAMIN [Concomitant]
     Route: 048
     Dates: start: 20061022
  18. PAXIL [Concomitant]
     Route: 048
  19. HARNAL D [Concomitant]
     Route: 048
     Dates: start: 20061026
  20. PANTOSIN [Concomitant]
     Route: 048
  21. FORSENID [Concomitant]
     Route: 048
     Dates: start: 20061027
  22. BESACOLIN [Concomitant]
     Indication: DYSURIA
     Route: 048
  23. MOBIC [Concomitant]
     Route: 048
     Dates: start: 20061031
  24. BETAMETHASONE SODIUM PHOSPHATE [Concomitant]
     Route: 048
  25. LENDORMIN [Concomitant]
     Route: 048
     Dates: start: 20061017
  26. LORCAM [Concomitant]
     Route: 048
  27. VEEN-D [Concomitant]
  28. GASTER [Concomitant]
     Dates: start: 20061031
  29. ISOTONIC SODIUM CHLORIDE SOLUTION [Concomitant]
  30. PHYSISALZ-PL [Concomitant]
     Dates: start: 20061031
  31. DECADRON [Concomitant]
  32. B FLUID [Concomitant]
     Route: 041
     Dates: start: 20061031
  33. PRIMPERAN TAB [Concomitant]
     Dates: start: 20061028
  34. ALLOID [Concomitant]
  35. SP [Concomitant]
     Route: 048
  36. MS CONTIN [Concomitant]
     Route: 048
  37. LEVOFLOXACIN [Concomitant]
     Route: 048
  38. DIFLUCAN [Concomitant]
     Route: 048
  39. CIPROFLOXACIN [Concomitant]
     Route: 048
     Dates: start: 20061108
  40. LANSOPRAZOLE [Concomitant]
     Route: 048
  41. HACHIAZULE [Concomitant]
     Dates: start: 20061118
  42. PROMAC [Concomitant]
     Route: 048
  43. LECICARBON [Concomitant]
     Route: 054
     Dates: start: 20061113
  44. LOCOID [Concomitant]
  45. NOVAMIN [Concomitant]
  46. RADIOTHERAPY [Concomitant]
     Dosage: 36 GY/ 14 TIMES TO BRAIN AND RIGHT CERVICAL REGION
     Dates: start: 20061025
  47. BETAMETHASONE [Concomitant]
     Dosage: GIVEN WITH RADIOTHERAPY
     Route: 048
     Dates: start: 20061025
  48. FENTANYL [Concomitant]
     Route: 062
     Dates: start: 20061031, end: 20061119
  49. FENTANYL [Concomitant]
     Route: 062
     Dates: start: 20061120, end: 20061121

REACTIONS (9)
  - ADRENAL NEOPLASM [None]
  - DRUG EFFECT DECREASED [None]
  - HAEMOGLOBIN DECREASED [None]
  - INADEQUATE ANALGESIA [None]
  - PAIN [None]
  - PLATELET COUNT DECREASED [None]
  - SOMNOLENCE [None]
  - VOMITING [None]
  - WHITE BLOOD CELL COUNT DECREASED [None]
